FAERS Safety Report 17278708 (Version 1)
Quarter: 2020Q1

REPORT INFORMATION
  Report Type: Spontaneous
  Country: CN (occurrence: CN)
  Receive Date: 20200116
  Receipt Date: 20200116
  Transmission Date: 20200409
  Serious: Yes (Other)
  Sender: FDA-Public Use
  Company Number: CN-PFIZER INC-2020019040

PATIENT
  Age: 77 Year
  Sex: Male
  Weight: 85 kg

DRUGS (1)
  1. TYGACIL [Suspect]
     Active Substance: TIGECYCLINE
     Indication: ANTI-INFECTIVE THERAPY
     Dosage: 100 MG, 2X/DAY
     Route: 041
     Dates: start: 20191126, end: 20191221

REACTIONS (2)
  - Haematochezia [Unknown]
  - Blood fibrinogen decreased [Recovering/Resolving]

NARRATIVE: CASE EVENT DATE: 201912
